FAERS Safety Report 8746891 (Version 2)
Quarter: 2012Q4

REPORT INFORMATION
  Report Type: 
  Country: US (occurrence: US)
  Receive Date: 20120827
  Receipt Date: 20121128
  Transmission Date: 20130627
  Serious: Yes (Death, Hospitalization)
  Sender: FDA-Public Use
  Company Number: US-INCYTE CORPORATION-2012IN001572

PATIENT
  Age: 68 None
  Sex: Male

DRUGS (4)
  1. JAKAFI [Suspect]
     Indication: MYELOFIBROSIS
     Dosage: 20 mg, bid
     Route: 048
     Dates: start: 20120202, end: 201207
  2. RITUXIMAB [Concomitant]
     Dosage: UNK
     Dates: end: 201205
  3. TYLENOL [Concomitant]
  4. BENEDRYL [Concomitant]

REACTIONS (12)
  - Disease progression [Fatal]
  - Pneumonia [Recovered/Resolved]
  - Epistaxis [Unknown]
  - Pyrexia [Not Recovered/Not Resolved]
  - Acute respiratory failure [Recovered/Resolved]
  - Atrial fibrillation [Unknown]
  - Renal failure acute [Unknown]
  - Blood count abnormal [Unknown]
  - Cachexia [Unknown]
  - Neutropenia [Unknown]
  - Thrombocytopenia [Unknown]
  - Anaemia [Unknown]
